FAERS Safety Report 9995573 (Version 2)
Quarter: 2014Q2

REPORT INFORMATION
  Report Type: Spontaneous
  Country: JP (occurrence: JP)
  Receive Date: 20140311
  Receipt Date: 20140401
  Transmission Date: 20141212
  Serious: Yes (Hospitalization)
  Sender: FDA-Public Use
  Company Number: JP-OTSUKA-JP-2014-12405

PATIENT
  Age: 80 Year
  Sex: Male
  Weight: 39 kg

DRUGS (10)
  1. SAMSCA [Suspect]
     Indication: ASCITES
     Dosage: 7.5 MG MILLIGRAM(S), DAILY DOSE
     Route: 048
     Dates: start: 20140205, end: 20140219
  2. SAMSCA [Suspect]
     Indication: OEDEMA PERIPHERAL
     Dosage: 3.75 MG MILLIGRAM(S), DAILY DOSE
     Route: 048
     Dates: start: 20140220, end: 20140221
  3. ALBUMIN [Concomitant]
     Dosage: UNK
     Route: 042
  4. LASIX [Concomitant]
     Dosage: 20 MG MILLIGRAM(S), DAILY DOSE
     Route: 042
     Dates: start: 20140205
  5. SOLDACTONE [Concomitant]
     Dosage: 100 MG MILLIGRAM(S), DAILY DOSE
     Route: 042
     Dates: start: 20140205
  6. FLUITRAN [Concomitant]
     Dosage: 2 MG MILLIGRAM(S), DAILY DOSE
     Route: 048
     Dates: start: 20140205, end: 20140219
  7. FLUITRAN [Concomitant]
     Dosage: 1 MG MILLIGRAM(S), DAILY DOSE
     Route: 048
     Dates: start: 20140220
  8. LASIX [Concomitant]
     Dosage: 40 MG MILLIGRAM(S), DAILY DOSE
     Route: 048
     Dates: end: 20140219
  9. LASIX [Concomitant]
     Dosage: 20 MG MILLIGRAM(S), DAILY DOSE
     Route: 048
     Dates: start: 20140220
  10. ALDACTONE A [Concomitant]
     Dosage: 25 MG MILLIGRAM(S), DAILY DOSE
     Route: 048

REACTIONS (4)
  - Hepatic encephalopathy [Recovered/Resolved]
  - Asterixis [Unknown]
  - Dehydration [Unknown]
  - Hepatic encephalopathy [Unknown]
